FAERS Safety Report 22383337 (Version 1)
Quarter: 2023Q2

REPORT INFORMATION
  Report Type: Spontaneous
  Country: US (occurrence: None)
  Receive Date: 20230526
  Receipt Date: 20230526
  Transmission Date: 20230721
  Serious: Yes (Life-Threatening, Hospitalization, Disabling, Other)
  Sender: FDA-Public Use
  Company Number: None

PATIENT
  Age: 71 Year
  Sex: Male
  Weight: 89.1 kg

DRUGS (1)
  1. KEYTRUDA [Suspect]
     Active Substance: PEMBROLIZUMAB
     Indication: Non-small cell lung cancer

REACTIONS (5)
  - Cardiomyopathy [None]
  - Myasthenia gravis [None]
  - Myocarditis [None]
  - Eyelid ptosis [None]
  - Atrioventricular block complete [None]

NARRATIVE: CASE EVENT DATE: 20230513
